FAERS Safety Report 6312229-6 (Version None)
Quarter: 2009Q3

REPORT INFORMATION
  Report Type: 
  Country: None (occurrence: None)
  Receive Date: 20090817
  Receipt Date: 20090805
  Transmission Date: 20100115
  Serious: Yes (Other)
  Sender: FDA-Public Use
  Company Number: CO-SANOFI-SYNTHELABO-A01200908303

PATIENT
  Sex: Female

DRUGS (4)
  1. CLONIDINE [Concomitant]
     Indication: HYPERTENSION
     Dosage: UNK
     Route: 065
  2. HYDROCHLOROTHIAZIDE [Concomitant]
     Indication: HYPERTENSION
     Dosage: UNK
     Route: 065
  3. LOSARTAN [Concomitant]
     Indication: HYPERTENSION
     Dosage: UNK
     Route: 065
  4. PLAVIX [Suspect]
     Indication: PROPHYLAXIS
     Route: 048
     Dates: start: 20090601, end: 20090701

REACTIONS (7)
  - AMNESIA [None]
  - FALL [None]
  - FOOD INTOLERANCE [None]
  - INCONTINENCE [None]
  - NAUSEA [None]
  - PETIT MAL EPILEPSY [None]
  - VOMITING [None]
